FAERS Safety Report 12270683 (Version 1)
Quarter: 2016Q2

REPORT INFORMATION
  Report Type: Spontaneous
  Country: US (occurrence: None)
  Receive Date: 20160414
  Receipt Date: 20160414
  Transmission Date: 20160815
  Serious: Yes (Death)
  Sender: FDA-Public Use
  Company Number: None

PATIENT
  Age: 78 Year
  Sex: Male
  Weight: 78.4 kg

DRUGS (3)
  1. LOSARTAN. [Concomitant]
     Active Substance: LOSARTAN
  2. SPIRONOLATONE, 50 MG [Suspect]
     Active Substance: SPIRONOLACTONE
     Indication: HYPERTENSION
     Route: 048
  3. FUROSEMIDE, 100 MG [Suspect]
     Active Substance: FUROSEMIDE
     Indication: BLOOD PRESSURE MEASUREMENT
     Route: 048

REACTIONS (6)
  - Asthenia [None]
  - Hyperkalaemia [None]
  - Dyspnoea [None]
  - Oliguria [None]
  - Sepsis [None]
  - Acute kidney injury [None]

NARRATIVE: CASE EVENT DATE: 20140406
